FAERS Safety Report 12501692 (Version 1)
Quarter: 2016Q2

REPORT INFORMATION
  Report Type: Spontaneous
  Country: US (occurrence: US)
  Receive Date: 20160627
  Receipt Date: 20160627
  Transmission Date: 20160815
  Serious: Yes (Other)
  Sender: FDA-Public Use
  Company Number: US-PFIZER INC-2016316356

PATIENT
  Age: 5 Decade
  Sex: Female

DRUGS (2)
  1. VENLAFAXINE HCL [Suspect]
     Active Substance: VENLAFAXINE HYDROCHLORIDE
     Indication: PANIC ATTACK
  2. VENLAFAXINE HCL [Suspect]
     Active Substance: VENLAFAXINE HYDROCHLORIDE
     Indication: ANXIETY
     Dosage: 75 MG, UNK

REACTIONS (5)
  - Hallucination [Recovered/Resolved]
  - Withdrawal syndrome [Recovered/Resolved]
  - Tinnitus [Recovered/Resolved]
  - Drug dose omission [Recovered/Resolved]
  - Apparent death [Recovered/Resolved]
